FAERS Safety Report 23536876 (Version 1)
Quarter: 2024Q1

REPORT INFORMATION
  Report Type: Spontaneous
  Country: GB (occurrence: GB)
  Receive Date: 20240219
  Receipt Date: 20240219
  Transmission Date: 20240410
  Serious: Yes (Disabling)
  Sender: FDA-Public Use
  Company Number: None

PATIENT
  Age: 58 Year
  Sex: Female
  Weight: 76 kg

DRUGS (32)
  1. TERIPARATIDE [Suspect]
     Active Substance: TERIPARATIDE
     Dosage: 750MICROGRAMS/3ML SOLUTION
     Route: 065
  2. CALCIUM CARBONATE [Concomitant]
     Active Substance: CALCIUM CARBONATE
     Dosage: EACH MORNING, DURATION: 300 DAYS
     Dates: start: 20230210, end: 20231207
  3. PROCHLORPERAZINE MALEATE [Concomitant]
     Active Substance: PROCHLORPERAZINE MALEATE
     Dosage: TIME INTERVAL: AS NECESSARY: 4HRLY AS REQUIRED
     Dates: start: 20231110
  4. ESTRADIOL [Concomitant]
     Active Substance: ESTRADIOL
     Dosage: TO BE USED AS DIRECTED
     Dates: start: 20220419
  5. SUCRALFATE [Concomitant]
     Active Substance: SUCRALFATE
     Dates: start: 20240201
  6. BENDROFLUMETHIAZIDE [Concomitant]
     Active Substance: BENDROFLUMETHIAZIDE
     Dosage: IN THE MORNING
     Dates: start: 20230223
  7. AMOXICILLIN [Concomitant]
     Active Substance: AMOXICILLIN
     Dosage: TIME INTERVAL: 0.33333333 DAYS: DURATION: 2 DAYS
     Dates: start: 20240108, end: 20240110
  8. SYMBICORT [Concomitant]
     Active Substance: BUDESONIDE\FORMOTEROL FUMARATE DIHYDRATE
     Dosage: PUFFS
     Dates: start: 20230802
  9. ACETAMINOPHEN [Concomitant]
     Active Substance: ACETAMINOPHEN
     Dosage: TIME INTERVAL: AS NECESSARY: ONE OR TWO TO BE TAKEN FOUR TIMES DAILY
     Dates: start: 20230707
  10. CARBOCYSTEINE [Concomitant]
     Active Substance: CARBOCYSTEINE
     Dosage: TIME INTERVAL: 0.33333333 DAYS
     Dates: start: 20231110
  11. DERMOL [Concomitant]
     Active Substance: BENZALKONIUM CHLORIDE\CHLORHEXIDINE HYDROCHLORIDE\ISOPROPYL MYRISTATE\PARAFFIN
     Dosage: USE AS DIRECTED FOR HAND WASHING
     Dates: start: 20220419
  12. FLUTICASONE PROPIONATE [Concomitant]
     Active Substance: FLUTICASONE PROPIONATE
     Dosage: TWICE DAILY
     Dates: start: 20230113
  13. TERBUTALINE [Concomitant]
     Active Substance: TERBUTALINE
     Dosage: TIME INTERVAL: AS NECESSARY: USE ONE OR TWO NEBULES WHEN REQUIRED
     Dates: start: 20230608
  14. LORATADINE [Concomitant]
     Active Substance: LORATADINE
     Dates: start: 20231026
  15. EPIPEN [Concomitant]
     Active Substance: EPINEPHRINE
     Dosage: INJECT ONE PEN BY INTRAMUSCULAR INJECTION WHEN ...
     Route: 030
     Dates: start: 20220419
  16. BRICANYL [Concomitant]
     Active Substance: TERBUTALINE SULFATE
     Dosage: TIME INTERVAL: AS NECESSARY: 5 -10 MGS AS REQUIRED
     Dates: start: 20221229
  17. RIZATRIPTAN [Concomitant]
     Active Substance: RIZATRIPTAN
     Dosage: 1 WAFER AT ONSET OF ATTACK,REPT AFTER 2 HRS IF ...
     Dates: start: 20230802
  18. SUMATRIPTAN [Concomitant]
     Active Substance: SUMATRIPTAN
     Dosage: AS DIRECTED - MAX DOSE 12MG PER DAY
     Dates: start: 20230707
  19. HYDROCORTISONE [Concomitant]
     Active Substance: HYDROCORTISONE
     Dosage: AS DIRECTED
     Dates: start: 20230802
  20. ONDANSETRON [Concomitant]
     Active Substance: ONDANSETRON
     Dosage: TIME INTERVAL: AS NECESSARY
     Dates: start: 20220419
  21. PREDNISOLONE [Concomitant]
     Active Substance: PREDNISOLONE
     Dosage: AS DIRECTED
     Dates: start: 20220419
  22. CANDESARTAN CILEXETIL [Concomitant]
     Active Substance: CANDESARTAN CILEXETIL
     Dates: start: 20230210
  23. CARBOCYSTEINE [Concomitant]
     Active Substance: CARBOCYSTEINE
     Dosage: USE AS DIRECTED, DURATION: 191 DAYS
     Dates: start: 20230503, end: 20231110
  24. AMDINOCILLIN PIVOXIL [Concomitant]
     Active Substance: AMDINOCILLIN PIVOXIL
     Dosage: TAKE TWO TABLETS IMMEDIATELY THEN ONE THREE TIM..., DURATION: 7 DAYS
     Dates: start: 20231207, end: 20231214
  25. MELATONIN [Concomitant]
     Active Substance: MELATONIN
     Dosage: AT NIGHT, ONE TO TWO HOURS BEFO...
     Dates: start: 20240201
  26. FLUCONAZOLE [Concomitant]
     Active Substance: FLUCONAZOLE
     Dosage: AS DIRECTED
     Dates: start: 20220419
  27. OMEPRAZOLE [Concomitant]
     Active Substance: OMEPRAZOLE
     Dosage: TO PROTECT THE LI...
     Dates: start: 20230503
  28. CEPHALEXIN [Concomitant]
     Active Substance: CEPHALEXIN
     Dosage: TIME INTERVAL: 0.33333333 DAYS: DURATION: 7 DAYS
     Dates: start: 20240119, end: 20240126
  29. CHOLECALCIFEROL [Concomitant]
     Active Substance: CHOLECALCIFEROL
     Dates: start: 20231207
  30. OMALIZUMAB [Concomitant]
     Active Substance: OMALIZUMAB
     Dates: start: 20240116
  31. SPIRIVA [Concomitant]
     Active Substance: TIOTROPIUM BROMIDE MONOHYDRATE
     Dosage: AFTER FIVE REFILL C...
     Dates: start: 20220715
  32. CICLESONIDE [Concomitant]
     Active Substance: CICLESONIDE
     Dosage: PUFF
     Dates: start: 20230802

REACTIONS (5)
  - Hypertension [Unknown]
  - Dizziness [Recovered/Resolved]
  - Gastrooesophageal reflux disease [Recovered/Resolved]
  - Hypercalcaemia [Recovered/Resolved]
  - Headache [Recovered/Resolved]
